FAERS Safety Report 24377619 (Version 1)
Quarter: 2024Q3

REPORT INFORMATION
  Report Type: Spontaneous
  Country: US (occurrence: US)
  Receive Date: 20240930
  Receipt Date: 20240930
  Transmission Date: 20241017
  Serious: No
  Sender: ARDELYX
  Company Number: US-ARDELYX-2024ARDX004452

PATIENT
  Sex: Female

DRUGS (9)
  1. IBSRELA [Suspect]
     Active Substance: TENAPANOR HYDROCHLORIDE
     Indication: Visceral pain
     Dosage: 50 MILLIGRAM, QD
     Route: 048
     Dates: start: 20240524, end: 20240609
  2. IBSRELA [Suspect]
     Active Substance: TENAPANOR HYDROCHLORIDE
     Dosage: 50 MILLIGRAM, BID
     Route: 048
     Dates: start: 20240609, end: 20240610
  3. IBSRELA [Suspect]
     Active Substance: TENAPANOR HYDROCHLORIDE
     Dosage: 50 MILLIGRAM, QD
     Route: 048
     Dates: start: 20240610, end: 202406
  4. IBSRELA [Suspect]
     Active Substance: TENAPANOR HYDROCHLORIDE
     Dosage: 50 MILLIGRAM, BID
     Route: 048
     Dates: start: 20240614, end: 20240616
  5. LISINOPRIL [Concomitant]
     Active Substance: LISINOPRIL
     Indication: Hypertension
     Route: 065
  6. GABAPENTIN [Concomitant]
     Active Substance: GABAPENTIN
     Indication: Sleep disorder
     Route: 065
  7. CLONAZEPAM [Concomitant]
     Active Substance: CLONAZEPAM
     Indication: Sleep disorder
     Route: 065
  8. LEVOTHYROXINE [Concomitant]
     Active Substance: LEVOTHYROXINE\LEVOTHYROXINE SODIUM
     Indication: Hypothyroidism
     Route: 065
  9. VICODIN [Concomitant]
     Active Substance: ACETAMINOPHEN\HYDROCODONE BITARTRATE
     Indication: Arthritis
     Route: 065

REACTIONS (8)
  - Gastrointestinal pain [Recovered/Resolved]
  - Condition aggravated [Recovered/Resolved]
  - Decreased appetite [Unknown]
  - Diarrhoea [Unknown]
  - Gastrointestinal sounds abnormal [Unknown]
  - Drug ineffective [Unknown]
  - Off label use [Unknown]
  - Inappropriate schedule of product administration [Unknown]

NARRATIVE: CASE EVENT DATE: 20240101
